FAERS Safety Report 23648395 (Version 1)
Quarter: 2024Q1

REPORT INFORMATION
  Report Type: Spontaneous
  Country: US (occurrence: US)
  Receive Date: 20240319
  Receipt Date: 20240319
  Transmission Date: 20240410
  Serious: No
  Sender: FDA-Public Use
  Company Number: US-PFIZER INC-202400067081

PATIENT
  Age: 15 Year
  Sex: Female

DRUGS (6)
  1. CIBINQO [Suspect]
     Active Substance: ABROCITINIB
     Indication: Dermatitis atopic
     Dosage: 50 MG, DAILY
  2. CIBINQO [Suspect]
     Active Substance: ABROCITINIB
     Indication: Lichenification
     Dosage: 100 MG, 1X/DAY
     Route: 048
  3. CIBINQO [Suspect]
     Active Substance: ABROCITINIB
     Indication: Erythema
  4. CIBINQO [Suspect]
     Active Substance: ABROCITINIB
     Indication: Eczema
  5. CIBINQO [Suspect]
     Active Substance: ABROCITINIB
     Indication: Impetigo
  6. CIBINQO [Suspect]
     Active Substance: ABROCITINIB
     Indication: Skin erosion

REACTIONS (2)
  - Therapeutic product effect incomplete [Unknown]
  - Off label use [Unknown]
